FAERS Safety Report 24626773 (Version 3)
Quarter: 2025Q3

REPORT INFORMATION
  Report Type: Spontaneous
  Country: EU (occurrence: EU)
  Receive Date: 20241115
  Receipt Date: 20250810
  Transmission Date: 20251021
  Serious: Yes (Hospitalization, Other)
  Sender: ALEXION PHARMACEUTICALS
  Company Number: EU-ALXN-202411EEA005189BE

PATIENT
  Sex: Female

DRUGS (2)
  1. SOLIRIS [Suspect]
     Active Substance: ECULIZUMAB
     Indication: Paroxysmal nocturnal haemoglobinuria
     Route: 065
  2. EXJADE [Suspect]
     Active Substance: DEFERASIROX
     Route: 065

REACTIONS (6)
  - Infection [Unknown]
  - Haemolysis [Unknown]
  - Neutropenia [Unknown]
  - Anaemia [Unknown]
  - Iron overload [Unknown]
  - Diarrhoea [Unknown]

NARRATIVE: CASE EVENT DATE: 20120101
